FAERS Safety Report 7376908-4 (Version None)
Quarter: 2011Q1

REPORT INFORMATION
  Report Type: 
  Country: None (occurrence: None)
  Receive Date: 20110327
  Receipt Date: 20110322
  Transmission Date: 20110831
  Serious: Yes (Other)
  Sender: FDA-Public Use
  Company Number: GR-BRISTOL-MYERS SQUIBB COMPANY-15623572

PATIENT
  Age: 68 Year
  Sex: Female

DRUGS (3)
  1. WELLBUTRIN [Concomitant]
  2. XANAX [Concomitant]
     Dosage: 1 DF=0.5/2 (HALF TABLET)
  3. ABILIFY [Suspect]
     Indication: MAJOR DEPRESSION
     Route: 048

REACTIONS (1)
  - THROMBOSIS [None]
